FAERS Safety Report 25617363 (Version 1)
Quarter: 2025Q3

REPORT INFORMATION
  Report Type: Spontaneous
  Country: US (occurrence: US)
  Receive Date: 20250729
  Receipt Date: 20250729
  Transmission Date: 20251020
  Serious: Yes (Hospitalization)
  Sender: MYLAN
  Company Number: US-MYLANLABS-2025M1062693

PATIENT
  Age: 68 Year
  Sex: Female

DRUGS (16)
  1. DOXORUBICIN [Suspect]
     Active Substance: DOXORUBICIN
     Indication: Hodgkin^s disease
  2. DOXORUBICIN [Suspect]
     Active Substance: DOXORUBICIN
     Route: 065
  3. DOXORUBICIN [Suspect]
     Active Substance: DOXORUBICIN
     Route: 065
  4. DOXORUBICIN [Suspect]
     Active Substance: DOXORUBICIN
  5. NIVOLUMAB [Suspect]
     Active Substance: NIVOLUMAB
     Indication: Hodgkin^s disease
  6. NIVOLUMAB [Suspect]
     Active Substance: NIVOLUMAB
     Route: 065
  7. NIVOLUMAB [Suspect]
     Active Substance: NIVOLUMAB
     Route: 065
  8. NIVOLUMAB [Suspect]
     Active Substance: NIVOLUMAB
  9. VINBLASTINE [Suspect]
     Active Substance: VINBLASTINE
     Indication: Hodgkin^s disease
  10. VINBLASTINE [Suspect]
     Active Substance: VINBLASTINE
     Route: 065
  11. VINBLASTINE [Suspect]
     Active Substance: VINBLASTINE
     Route: 065
  12. VINBLASTINE [Suspect]
     Active Substance: VINBLASTINE
  13. DACARBAZINE [Suspect]
     Active Substance: DACARBAZINE
     Indication: Hodgkin^s disease
  14. DACARBAZINE [Suspect]
     Active Substance: DACARBAZINE
     Route: 065
  15. DACARBAZINE [Suspect]
     Active Substance: DACARBAZINE
     Route: 065
  16. DACARBAZINE [Suspect]
     Active Substance: DACARBAZINE

REACTIONS (2)
  - Drug ineffective [Unknown]
  - Disease progression [Unknown]
